FAERS Safety Report 6384645-8 (Version None)
Quarter: 2009Q4

REPORT INFORMATION
  Report Type: 
  Country: None (occurrence: None)
  Receive Date: 20091001
  Receipt Date: 20090923
  Transmission Date: 20100525
  Serious: Yes (Life-Threatening, Hospitalization, Other)
  Sender: FDA-Public Use
  Company Number: PHHY2009FR25574

PATIENT
  Sex: Female
  Weight: 50 kg

DRUGS (1)
  1. GLEEVEC [Suspect]
     Dosage: 400 MG
     Route: 065
     Dates: start: 20070401

REACTIONS (17)
  - ACUTE PULMONARY OEDEMA [None]
  - ASTHENIA [None]
  - BUNDLE BRANCH BLOCK LEFT [None]
  - CARDIAC FAILURE [None]
  - CARDIOGENIC SHOCK [None]
  - CONGESTIVE CARDIOMYOPATHY [None]
  - CYTOLYTIC HEPATITIS [None]
  - DYSPNOEA EXERTIONAL [None]
  - EJECTION FRACTION DECREASED [None]
  - ELECTROCARDIOGRAM REPOLARISATION ABNORMALITY [None]
  - HEPATIC FAILURE [None]
  - MITRAL VALVE INCOMPETENCE [None]
  - NORMOCHROMIC NORMOCYTIC ANAEMIA [None]
  - PERICARDIAL EFFUSION [None]
  - RENAL FAILURE ACUTE [None]
  - THROMBOCYTOPENIA [None]
  - VENTRICULAR DYSFUNCTION [None]
